FAERS Safety Report 5351525-6 (Version None)
Quarter: 2007Q2

REPORT INFORMATION
  Report Type: 
  Country: None (occurrence: None)
  Receive Date: 20070608
  Receipt Date: 20070528
  Transmission Date: 20071010
  Serious: Yes (Other)
  Sender: FDA-Public Use
  Company Number: KR-MERCK-0705KOR00037

PATIENT
  Age: 61 Year
  Sex: Male
  Weight: 67 kg

DRUGS (14)
  1. CANCIDAS [Suspect]
     Indication: ASPERGILLOSIS
     Route: 042
     Dates: start: 20070512
  2. TAZOCIN [Concomitant]
     Indication: PNEUMONIA
     Route: 065
     Dates: start: 20070420, end: 20070514
  3. AMPHOTERICIN B [Concomitant]
     Indication: PNEUMONIA
     Route: 065
     Dates: start: 20070423, end: 20070510
  4. LEVOFLOXACIN [Concomitant]
     Indication: PNEUMONIA
     Route: 065
     Dates: start: 20070428
  5. DEXAMETHASONE [Concomitant]
     Indication: RENAL CELL CARCINOMA STAGE UNSPECIFIED
     Route: 065
     Dates: start: 20070421
  6. RANITIDINE [Concomitant]
     Indication: GASTRITIS PROPHYLAXIS
     Route: 065
     Dates: start: 20070421, end: 20070519
  7. PHAZYME [Concomitant]
     Indication: PROPHYLAXIS
     Route: 065
     Dates: start: 20070421
  8. OXOLAMINE [Concomitant]
     Indication: PNEUMONIA
     Route: 065
     Dates: start: 20070505
  9. AMBROXOL [Concomitant]
     Indication: PNEUMONIA
     Route: 065
     Dates: start: 20070505, end: 20070520
  10. GABAPENTIN [Concomitant]
     Indication: ANTICONVULSANT DRUG LEVEL
     Route: 065
     Dates: start: 20070427
  11. CARBAMAZEPINE [Concomitant]
     Indication: ANTICONVULSANT DRUG LEVEL
     Route: 065
     Dates: start: 20070509, end: 20070519
  12. MAGNESIUM OXIDE [Concomitant]
     Indication: CONSTIPATION
     Route: 065
     Dates: start: 20070422
  13. ALFUZOSIN HYDROCHLORIDE [Concomitant]
     Indication: BENIGN PROSTATIC HYPERPLASIA
     Route: 065
     Dates: start: 20070502, end: 20070522
  14. CIPROFLOXACIN [Concomitant]
     Indication: PNEUMONIA
     Route: 065
     Dates: start: 20070420

REACTIONS (1)
  - SEPTIC SHOCK [None]
